FAERS Safety Report 22223627 (Version 1)
Quarter: 2023Q2

REPORT INFORMATION
  Report Type: Spontaneous
  Country: US (occurrence: None)
  Receive Date: 20230417
  Receipt Date: 20230417
  Transmission Date: 20230721
  Serious: Yes (Disabling)
  Sender: FDA-Public Use
  Company Number: None

PATIENT
  Age: 32 Year
  Sex: Female
  Weight: 65.25 kg

DRUGS (5)
  1. SERTRALINE [Suspect]
     Active Substance: SERTRALINE HYDROCHLORIDE
     Indication: Generalised anxiety disorder
     Dosage: 1.5 TABLETS DAILY ORAL?
     Route: 048
     Dates: start: 20210111, end: 20220303
  2. VALIUM [Concomitant]
     Active Substance: DIAZEPAM
  3. drospirenone-ethinyl estradiol (birth control) [Concomitant]
  4. BENADRYL [Concomitant]
     Active Substance: DIPHENHYDRAMINE HYDROCHLORIDE
  5. SERTRALINE [Suspect]
     Active Substance: SERTRALINE HYDROCHLORIDE
     Indication: Panic disorder

REACTIONS (1)
  - Torticollis [None]

NARRATIVE: CASE EVENT DATE: 20220203
